FAERS Safety Report 8586704-8 (Version None)
Quarter: 2012Q3

REPORT INFORMATION
  Report Type: 
  Country: None (occurrence: None)
  Receive Date: 20120810
  Receipt Date: 20120807
  Transmission Date: 20120928
  Serious: No
  Sender: FDA-Public Use
  Company Number: US-PFIZER INC-2012144159

PATIENT
  Age: 55 Year
  Sex: Male
  Weight: 100 kg

DRUGS (5)
  1. DEPO-TESTOSTERONE [Suspect]
     Indication: ANDROGEN DEFICIENCY
     Dosage: UNK, ONCE IN EVERY TWO WEEKS
     Route: 030
     Dates: start: 20111121
  2. DEPO-TESTOSTERONE [Suspect]
     Dosage: 0.25 ML, UNK
     Dates: start: 20120625
  3. DEPO-TESTOSTERONE [Suspect]
     Dosage: 300 MG, 1.5 CC, 200 MG/CC OF 2 WEEKS
     Route: 030
     Dates: start: 20120507, end: 20120521
  4. AMBIEN [Concomitant]
     Dosage: 10 MG, 1X/DAY
  5. PHENTERMINE [Concomitant]
     Dosage: 37.5 MG, 1X/DAY

REACTIONS (2)
  - INJECTION SITE URTICARIA [None]
  - RASH [None]
